APPROVED DRUG PRODUCT: ORMALVI
Active Ingredient: DICHLORPHENAMIDE
Strength: 50MG
Dosage Form/Route: TABLET;ORAL
Application: A215924 | Product #001 | TE Code: AB
Applicant: TORRENT PHARMA INC
Approved: Dec 29, 2022 | RLD: No | RS: No | Type: RX